APPROVED DRUG PRODUCT: BUTORPHANOL TARTRATE
Active Ingredient: BUTORPHANOL TARTRATE
Strength: 1MG/SPRAY
Dosage Form/Route: SPRAY, METERED;NASAL
Application: A075499 | Product #001 | TE Code: AB
Applicant: APOTEX INC
Approved: Dec 4, 2002 | RLD: No | RS: No | Type: RX